FAERS Safety Report 8162615-7 (Version None)
Quarter: 2012Q1

REPORT INFORMATION
  Report Type: 
  Country: None (occurrence: None)
  Receive Date: 20120224
  Receipt Date: 20120209
  Transmission Date: 20120608
  Serious: Yes (Other)
  Sender: FDA-Public Use
  Company Number: CS-RANBAXY-2012RR-52772

PATIENT
  Age: 10 Year
  Sex: Female

DRUGS (2)
  1. METRONIDAZOLE [Suspect]
     Indication: TOOTH INFECTION
     Route: 065
  2. AMOXICILLIN [Suspect]
     Indication: TOOTH INFECTION
     Dosage: 500 MG, UNK
     Route: 048

REACTIONS (4)
  - LIP SWELLING [None]
  - HYPERSENSITIVITY [None]
  - URTICARIA [None]
  - FLUSHING [None]
